FAERS Safety Report 6306805-4 (Version None)
Quarter: 2009Q3

REPORT INFORMATION
  Report Type: 
  Country: None (occurrence: None)
  Receive Date: 20090811
  Receipt Date: 20090811
  Transmission Date: 20100115
  Serious: No
  Sender: FDA-Public Use
  Company Number: None

PATIENT
  Sex: Female

DRUGS (1)
  1. NORTREL 1/35-21 [Suspect]
     Indication: ORAL CONTRACEPTION
     Dosage: 1 QD PO
     Route: 048
     Dates: start: 20090721, end: 20090810

REACTIONS (7)
  - AGITATION [None]
  - ANGER [None]
  - ANXIETY [None]
  - DEPRESSION [None]
  - EATING DISORDER [None]
  - INSOMNIA [None]
  - METRORRHAGIA [None]
